FAERS Safety Report 10425847 (Version 1)
Quarter: 2014Q3

REPORT INFORMATION
  Report Type: Spontaneous
  Country: DE (occurrence: DE)
  Receive Date: 20140903
  Receipt Date: 20140903
  Transmission Date: 20150326
  Serious: Yes (Death, Life-Threatening, Other)
  Sender: FDA-Public Use
  Company Number: DE-AUROBINDO-AUR-APL-2014-09132

PATIENT
  Age: 88 Year
  Sex: Female
  Weight: 65 kg

DRUGS (7)
  1. NITRENDIPIN [Concomitant]
     Indication: HYPERTENSION
     Dosage: 20 MG, ONCE A DAY
     Route: 065
     Dates: end: 20140809
  2. GLIMEPRID [Concomitant]
     Active Substance: GLIMEPIRIDE
     Indication: DIABETES MELLITUS
     Dosage: 3 MG, ONCE A DAY
     Route: 065
     Dates: end: 20140809
  3. METFORMIN [Suspect]
     Active Substance: METFORMIN HYDROCHLORIDE
     Indication: DIABETES MELLITUS
     Dosage: 0.5 DF, TWO TIMES A DAY (I DF DOSAGE FORM EVERY DAYS)
     Route: 065
     Dates: end: 20140809
  4. RIVAROXABAN [Concomitant]
     Active Substance: RIVAROXABAN
     Indication: ATRIAL FIBRILLATION
     Dosage: 15 MG, ONCE A DAY
     Route: 065
     Dates: end: 20140809
  5. ESIDRIX [Concomitant]
     Active Substance: HYDROCHLOROTHIAZIDE
     Indication: PRODUCT USED FOR UNKNOWN INDICATION
     Dosage: 50/20 MG, 1 DF, ONCE A DAY
  6. TORASEMID [Concomitant]
     Active Substance: TORSEMIDE
     Indication: HYPERTENSION
     Dosage: 10 MG, ONCE A DAY
     Route: 065
     Dates: start: 20140809
  7. BISOPROLOL [Concomitant]
     Active Substance: BISOPROLOL
     Indication: HYPERTENSION
     Dosage: 2.5 MG, TWO TIMES A DAY
     Route: 065
     Dates: end: 20140809

REACTIONS (2)
  - Lactic acidosis [Fatal]
  - Glomerular filtration rate decreased [Unknown]

NARRATIVE: CASE EVENT DATE: 20140810
